FAERS Safety Report 23313259 (Version 1)
Quarter: 2023Q4

REPORT INFORMATION
  Report Type: Spontaneous
  Country: US (occurrence: None)
  Receive Date: 20231218
  Receipt Date: 20231218
  Transmission Date: 20240110
  Serious: No
  Sender: FDA-Public Use
  Company Number: None

PATIENT
  Age: 48 Year
  Sex: Female
  Weight: 62.6 kg

DRUGS (1)
  1. MIRENA [Suspect]
     Active Substance: LEVONORGESTREL

REACTIONS (8)
  - Anxiety [None]
  - Panic reaction [None]
  - Dizziness [None]
  - Confusional state [None]
  - Brain fog [None]
  - Pain [None]
  - Akathisia [None]
  - Complication associated with device [None]

NARRATIVE: CASE EVENT DATE: 20231213
